FAERS Safety Report 5242938-1 (Version None)
Quarter: 2007Q1

REPORT INFORMATION
  Report Type: 
  Country: None (occurrence: None)
  Receive Date: 20070221
  Receipt Date: 20070215
  Transmission Date: 20070707
  Serious: Yes (Hospitalization)
  Sender: FDA-Public Use
  Company Number: CAWYE694215FEB07

PATIENT

DRUGS (1)
  1. VENLAFAXINE HYDROCHLORIDE [Suspect]

REACTIONS (1)
  - WATER INTOXICATION [None]
